FAERS Safety Report 23456782 (Version 2)
Quarter: 2024Q3

REPORT INFORMATION
  Report Type: Report from Study
  Country: MX (occurrence: MX)
  Receive Date: 20240130
  Receipt Date: 20240715
  Transmission Date: 20241017
  Serious: Yes (Other)
  Sender: NOVARTIS
  Company Number: MX-002147023-NVSC2024MX018683

PATIENT
  Age: 54 Year
  Sex: Female
  Weight: 51 kg

DRUGS (7)
  1. GILENYA [Suspect]
     Active Substance: FINGOLIMOD HYDROCHLORIDE
     Indication: Multiple sclerosis
     Dosage: 0.5 MG, QD (3 YEARS AGO)
     Route: 048
     Dates: start: 2021
  2. GILENYA [Suspect]
     Active Substance: FINGOLIMOD HYDROCHLORIDE
     Dosage: 0.5 MG, QD
     Route: 048
  3. OXCARBAZEPINE [Suspect]
     Active Substance: OXCARBAZEPINE
     Indication: Product used for unknown indication
     Dosage: 600 MG, Q8H (STARTED 7 YEARS AGO)
     Route: 065
  4. GABAPENTIN [Concomitant]
     Active Substance: GABAPENTIN
     Indication: Product used for unknown indication
     Dosage: 300 MG, Q8H (STARTED 7 YEARS AGO)
     Route: 065
  5. IMIPRAMINE [Concomitant]
     Active Substance: IMIPRAMINE
     Indication: Product used for unknown indication
     Dosage: 1 OF 25MG, QD, STARTED 7 YEARS AGO
     Route: 065
  6. LOSARTAN [Concomitant]
     Active Substance: LOSARTAN
     Indication: Product used for unknown indication
     Dosage: 50 MG, BID (IN THE MORNING AND AT NIGHT), STARTED 7 YEARS AGO
     Route: 065
  7. LOSARTAN [Concomitant]
     Active Substance: LOSARTAN
     Dosage: 60 MG, BID (IN THE MORNING AND AT NIGHT), STARTED 7 YEARS AGO
     Route: 065

REACTIONS (10)
  - Loss of consciousness [Unknown]
  - Trigeminal neuralgia [Recovering/Resolving]
  - Insomnia [Unknown]
  - Speech disorder [Unknown]
  - Feeding disorder [Unknown]
  - Paraesthesia [Recovering/Resolving]
  - Hyperaesthesia teeth [Recovering/Resolving]
  - Trismus [Recovering/Resolving]
  - Condition aggravated [Unknown]
  - Drooling [Unknown]

NARRATIVE: CASE EVENT DATE: 20231101
